FAERS Safety Report 16825874 (Version 1)
Quarter: 2019Q3

REPORT INFORMATION
  Report Type: Spontaneous
  Country: VN (occurrence: VN)
  Receive Date: 20190919
  Receipt Date: 20190919
  Transmission Date: 20191005
  Serious: Yes (Other)
  Sender: FDA-Public Use
  Company Number: VN-ROCHE-2405090

PATIENT
  Age: 87 Year
  Sex: Female

DRUGS (3)
  1. CEFOXITIN [Concomitant]
     Active Substance: CEFOXITIN SODIUM
     Dosage: (2 GM,1 BOTTLE)
     Route: 065
  2. ACTILYSE [Suspect]
     Active Substance: ALTEPLASE
     Indication: ISCHAEMIC STROKE
     Route: 040
  3. LEVOFLOXACIN. [Concomitant]
     Active Substance: LEVOFLOXACIN
     Dosage: (750 MG/150 ML 1 TUBE IV XXX G/P)
     Route: 065

REACTIONS (12)
  - Hypertension [Unknown]
  - Pneumonia [Unknown]
  - Coma [Unknown]
  - Atrial fibrillation [Unknown]
  - Respiratory failure [Unknown]
  - Hypotension [Unknown]
  - Musculoskeletal stiffness [Unknown]
  - Cerebral vascular occlusion [Unknown]
  - Cerebral haemorrhage [Unknown]
  - Cerebral infarction [Unknown]
  - Hyperlipidaemia [Unknown]
  - Mouth haemorrhage [Unknown]
